FAERS Safety Report 21342845 (Version 1)
Quarter: 2022Q3

REPORT INFORMATION
  Report Type: Spontaneous
  Country: PL (occurrence: PL)
  Receive Date: 20220916
  Receipt Date: 20220916
  Transmission Date: 20221026
  Serious: Yes (Death, Hospitalization, Other)
  Sender: FDA-Public Use
  Company Number: PL-MYLANLABS-2022M1088950

PATIENT
  Age: 42 Year
  Sex: Male

DRUGS (10)
  1. CISPLATIN [Suspect]
     Active Substance: CISPLATIN
     Indication: Spleen disorder
     Dosage: 100 MG/M2, CYCLIC (ON DAY 2 EVERY 21 DAYS)
     Route: 042
     Dates: start: 2013, end: 201309
  2. CISPLATIN [Suspect]
     Active Substance: CISPLATIN
     Indication: Angiosarcoma
  3. DOXORUBICIN HYDROCHLORIDE [Suspect]
     Active Substance: DOXORUBICIN HYDROCHLORIDE
     Indication: Angiosarcoma
     Dosage: 60 MG/M2, CYCLIC (ON DAY 2 EVERY 21 DAYS)
     Route: 042
     Dates: start: 2013, end: 201309
  4. DOXORUBICIN HYDROCHLORIDE [Suspect]
     Active Substance: DOXORUBICIN HYDROCHLORIDE
     Indication: Spleen disorder
  5. PACLITAXEL [Suspect]
     Active Substance: PACLITAXEL
     Indication: Angiosarcoma
     Dosage: 80 MG/M2, CYCLIC (ON DAYS 1, 8, AND 15 AND EVERY 28 DAYS)
  6. PACLITAXEL [Suspect]
     Active Substance: PACLITAXEL
     Indication: Spleen disorder
  7. IFOSFAMIDE [Suspect]
     Active Substance: IFOSFAMIDE
     Indication: Spleen disorder
     Dosage: 5G/M2, CYCLIC (ON DAY 1 EVERY 21 DAYS)
     Route: 042
     Dates: start: 2013, end: 201309
  8. IFOSFAMIDE [Suspect]
     Active Substance: IFOSFAMIDE
     Indication: Angiosarcoma
  9. NAVELBINE [Suspect]
     Active Substance: VINORELBINE TARTRATE
     Indication: Angiosarcoma
     Dosage: 30 MG/M2, CYCLIC (ON DAYS 1, 8, AND 15 AND EVERY 28 DAYS)
     Dates: start: 2013
  10. NAVELBINE [Suspect]
     Active Substance: VINORELBINE TARTRATE
     Indication: Spleen disorder

REACTIONS (6)
  - Death [Fatal]
  - Pneumonia [Unknown]
  - Leukopenia [Unknown]
  - Neutropenia [Unknown]
  - Neoplasm progression [Unknown]
  - Off label use [Unknown]
